FAERS Safety Report 7478488-1 (Version None)
Quarter: 2011Q2

REPORT INFORMATION
  Report Type: 
  Country: None (occurrence: None)
  Receive Date: 20110513
  Receipt Date: 20110429
  Transmission Date: 20111010
  Serious: Yes (Other)
  Sender: FDA-Public Use
  Company Number: PHHY2010US80009

PATIENT
  Sex: Female

DRUGS (3)
  1. EXTAVIA [Suspect]
     Dosage: 0.25 MG, QOD
     Route: 058
     Dates: start: 20101116
  2. ASPIRIN [Concomitant]
  3. EXTAVIA [Suspect]
     Indication: MULTIPLE SCLEROSIS
     Dosage: 0.0625 MG (0.25 ML), QOD
     Route: 058
     Dates: start: 20101112

REACTIONS (13)
  - SOMNOLENCE [None]
  - INSOMNIA [None]
  - FALL [None]
  - DIZZINESS [None]
  - INFLUENZA LIKE ILLNESS [None]
  - GAIT DISTURBANCE [None]
  - ASTHENIA [None]
  - ARTHROPATHY [None]
  - INJECTION SITE HAEMATOMA [None]
  - BALANCE DISORDER [None]
  - FATIGUE [None]
  - CONSTIPATION [None]
  - HEADACHE [None]
